FAERS Safety Report 4948545-X (Version None)
Quarter: 2006Q1

REPORT INFORMATION
  Report Type: 
  Country: None (occurrence: None)
  Receive Date: 20060320
  Receipt Date: 20050718
  Transmission Date: 20060701
  Serious: Yes (Other)
  Sender: FDA-Public Use
  Company Number: US-MERCK-0507USA03038

PATIENT
  Age: 64 Year
  Sex: Male
  Weight: 77 kg

DRUGS (1)
  1. VIOXX [Suspect]
     Indication: ARTHRITIS
     Route: 048

REACTIONS (16)
  - ALCOHOLIC PANCREATITIS [None]
  - ANXIETY [None]
  - CEREBROVASCULAR ACCIDENT [None]
  - DIPLOPIA [None]
  - DYSURIA [None]
  - GASTROENTERITIS RADIATION [None]
  - HAEMATOCHEZIA [None]
  - HEADACHE [None]
  - INSOMNIA [None]
  - OPHTHALMOPLEGIA [None]
  - PARAESTHESIA [None]
  - RADICULOPATHY [None]
  - RECTAL HAEMORRHAGE [None]
  - RENAL CYST [None]
  - SEXUAL DYSFUNCTION [None]
  - SINUSITIS [None]
